FAERS Safety Report 8486593-6 (Version None)
Quarter: 2012Q3

REPORT INFORMATION
  Report Type: 
  Country: None (occurrence: None)
  Receive Date: 20120703
  Receipt Date: 20120628
  Transmission Date: 20120928
  Serious: No
  Sender: FDA-Public Use
  Company Number: US-PFIZER INC-2012156341

PATIENT
  Sex: Female
  Weight: 78.005 kg

DRUGS (6)
  1. IBUPROFEN [Suspect]
     Indication: HEADACHE
  2. CELEBREX [Suspect]
     Indication: BACK PAIN
     Dosage: 400 MG, 2X/DAY
     Route: 048
     Dates: start: 20120601, end: 20120601
  3. CELEBREX [Suspect]
     Indication: MUSCLE SPASMS
  4. IBUPROFEN [Suspect]
     Indication: BACK PAIN
     Dosage: 3600 MG, IN A DAY
     Route: 048
     Dates: start: 20120601, end: 20120601
  5. ALBUTEROL [Concomitant]
     Indication: ASTHMA
     Dosage: UNKNOWN DOSE TWO PUFFS AS NEEDED
  6. CELEBREX [Suspect]
     Indication: HEADACHE

REACTIONS (6)
  - BRONCHITIS [None]
  - NASOPHARYNGITIS [None]
  - COUGH [None]
  - DRUG INEFFECTIVE [None]
  - INCORRECT DOSE ADMINISTERED [None]
  - GASTROOESOPHAGEAL REFLUX DISEASE [None]
